FAERS Safety Report 6407101-7 (Version None)
Quarter: 2009Q4

REPORT INFORMATION
  Report Type: 
  Country: None (occurrence: None)
  Receive Date: 20091020
  Receipt Date: 20091012
  Transmission Date: 20100525
  Serious: Yes (Hospitalization, Other)
  Sender: FDA-Public Use
  Company Number: FR-ROXANE LABORATORIES, INC.-2009-RO-01053RO

PATIENT
  Age: 64 Year
  Sex: Male

DRUGS (9)
  1. LITHIUM CARBONATE [Suspect]
  2. LITHIUM CARBONATE [Suspect]
     Route: 048
  3. LITHIUM CARBONATE [Suspect]
     Route: 048
  4. LEVOTHYROXINE SODIUM [Suspect]
  5. ZOLMITRIPTAN [Suspect]
  6. GLUCOSE SALINE SOLUTION [Concomitant]
     Indication: FLUID REPLACEMENT
     Route: 042
  7. GLUCOSE SALINE SOLUTION [Concomitant]
     Indication: DRUG TOXICITY
  8. SALINE [Concomitant]
     Indication: FLUID REPLACEMENT
     Route: 042
  9. SALINE [Concomitant]
     Indication: DRUG TOXICITY

REACTIONS (9)
  - ABDOMINAL PAIN [None]
  - DIARRHOEA [None]
  - DRUG TOXICITY [None]
  - HYPOTHYROIDISM [None]
  - NAUSEA [None]
  - PSYCHOMOTOR RETARDATION [None]
  - SUICIDE ATTEMPT [None]
  - TREMOR [None]
  - VOMITING [None]
